FAERS Safety Report 7013066-X (Version None)
Quarter: 2010Q3

REPORT INFORMATION
  Report Type: 
  Country: None (occurrence: None)
  Receive Date: 20100924
  Receipt Date: 20100914
  Transmission Date: 20110219
  Serious: Yes (Hospitalization, Other)
  Sender: FDA-Public Use
  Company Number: US-PFIZER INC-2010070312

PATIENT
  Sex: Female

DRUGS (12)
  1. LYRICA [Suspect]
     Indication: BACK PAIN
     Dosage: 200 MG, 3X/DAY
     Route: 048
  2. LYRICA [Suspect]
     Indication: NEUROPATHY PERIPHERAL
  3. GABAPENTIN [Suspect]
     Indication: NEUROPATHY PERIPHERAL
     Dosage: 600 MG, 3X/DAY
     Route: 048
  4. GABAPENTIN [Suspect]
     Indication: BACK PAIN
  5. CYMBALTA [Suspect]
     Dosage: 60 MG, 1X/DAY
     Route: 048
  6. IBANDRONATE SODIUM [Concomitant]
     Dosage: 150 MG, 1X/DAY
     Route: 048
  7. VITAMIN D [Concomitant]
     Dosage: 400 IU, 1X/DAY
     Route: 048
  8. ADVAIR DISKUS 100/50 [Concomitant]
     Dosage: [FLUTICASONE 50 MG] / [SALMETEROL 50 MG], TWICE DAILY
     Route: 048
  9. XANAX [Concomitant]
     Dosage: 1 MG, AT BEDTIME
     Route: 048
  10. NORTRIPTYLINE [Concomitant]
     Dosage: 25 MG, AT BEDTIME
     Route: 048
  11. PERCOCET [Concomitant]
     Indication: PAIN
     Dosage: 7.5 MG, EVERY 6 HOURS AS NEEDED
     Route: 048
  12. NEXIUM [Concomitant]
     Dosage: 40 MG, 1X/DAY
     Route: 048

REACTIONS (7)
  - ARTHRALGIA [None]
  - BACK PAIN [None]
  - DEHYDRATION [None]
  - FALL [None]
  - LOSS OF CONSCIOUSNESS [None]
  - MALNUTRITION [None]
  - WHITE BLOOD CELL COUNT INCREASED [None]
